FAERS Safety Report 7937411-3 (Version None)
Quarter: 2011Q4

REPORT INFORMATION
  Report Type: 
  Country: None (occurrence: None)
  Receive Date: 20111123
  Receipt Date: 20111116
  Transmission Date: 20120403
  Serious: Yes (Other)
  Sender: FDA-Public Use
  Company Number: FR-JNJFOC-20110310743

PATIENT
  Sex: Male

DRUGS (20)
  1. FLUTICASONE PROPIONATE/SALMETEROL [Concomitant]
     Indication: ASTHMA
     Dosage: 50/25 UG
  2. TIENAM [Suspect]
     Indication: PRODUCT USED FOR UNKNOWN INDICATION
     Dosage: 500/500MG
     Route: 042
     Dates: start: 20100914, end: 20100917
  3. ACETYLCYSTEINE [Concomitant]
     Dates: start: 20100907, end: 20100917
  4. ALDACTONE [Concomitant]
     Dates: end: 20100917
  5. DILTIAZEM HCL [Concomitant]
     Indication: ANGINA PECTORIS
     Dates: end: 20100917
  6. ASPIRIN [Concomitant]
  7. ACETAMINOPHEN [Concomitant]
     Indication: PAIN
  8. BRICANYL [Concomitant]
     Indication: ASTHMA
     Dosage: 5MG/2ML
  9. SOLU-MEDROL [Concomitant]
     Dates: end: 20100917
  10. LOVENOX [Concomitant]
  11. SCOPOLAMINE [Suspect]
     Indication: PALLIATIVE CARE
     Route: 058
     Dates: start: 20100917, end: 20100917
  12. INSULIN HUMAN INJECTION, ISOPHANE [Concomitant]
  13. SPORANOX [Concomitant]
  14. LASIX [Concomitant]
     Dosage: 20MG/2ML
  15. MORPHINE [Concomitant]
     Indication: PAIN
  16. DILTIAZEM HCL [Concomitant]
     Indication: ANXIETY
     Dates: end: 20100917
  17. IRBESARTAN [Concomitant]
     Indication: HYPERTENSION
  18. ATROVENT [Concomitant]
     Dosage: 0.5MG/2ML
  19. TRAMADOL HCL [Suspect]
     Indication: BACK PAIN
     Route: 048
     Dates: start: 20100917, end: 20100917
  20. POTASSIUM CHLORIDE [Concomitant]
     Dates: end: 20100917

REACTIONS (4)
  - HALLUCINATION [None]
  - DELUSIONAL DISORDER, UNSPECIFIED TYPE [None]
  - ANXIETY [None]
  - AGITATION [None]
